FAERS Safety Report 4735062-5 (Version None)
Quarter: 2005Q3

REPORT INFORMATION
  Report Type: 
  Country: None (occurrence: None)
  Receive Date: 20050804
  Receipt Date: 20050309
  Transmission Date: 20060218
  Serious: Yes (Hospitalization, Disabling, Other)
  Sender: FDA-Public Use
  Company Number: US-MERCK-0503USA01951

PATIENT
  Age: 51 Year
  Sex: Female
  Weight: 77 kg

DRUGS (3)
  1. VIOXX [Suspect]
     Indication: ARTHRITIS
     Route: 048
     Dates: start: 20010627, end: 20040930
  2. VIOXX [Suspect]
     Indication: BONE PAIN
     Route: 048
     Dates: start: 20010627, end: 20040930
  3. SYNTHROID [Concomitant]
     Route: 065
     Dates: start: 19960101

REACTIONS (11)
  - ANGINA PECTORIS [None]
  - CHEST PAIN [None]
  - COAGULOPATHY [None]
  - CORONARY ARTERY DISEASE [None]
  - DEPRESSION [None]
  - GENERALISED ANXIETY DISORDER [None]
  - MYOCARDIAL INFARCTION [None]
  - OEDEMA [None]
  - PANIC ATTACK [None]
  - POLYTRAUMATISM [None]
  - PULMONARY EMBOLISM [None]
